FAERS Safety Report 16406554 (Version 3)
Quarter: 2019Q3

REPORT INFORMATION
  Report Type: Spontaneous
  Country: DE (occurrence: DE)
  Receive Date: 20190607
  Receipt Date: 20190926
  Transmission Date: 20191004
  Serious: Yes (Life-Threatening, Other)
  Sender: FDA-Public Use
  Company Number: PHHY2019DE129643

PATIENT
  Age: 18 Year
  Sex: Female
  Weight: 62 kg

DRUGS (8)
  1. PANTOPRAZOL [Concomitant]
     Active Substance: PANTOPRAZOLE SODIUM
     Indication: CHELATION THERAPY
     Dosage: 40 MG, QD
     Route: 048
     Dates: start: 201809
  2. ILARIS [Suspect]
     Active Substance: CANAKINUMAB
     Indication: BRUCELLOSIS
     Dosage: 150 MG, Q4W
     Route: 058
     Dates: start: 20190327
  3. HYDROCORTISONE. [Concomitant]
     Active Substance: HYDROCORTISONE
     Indication: SECONDARY HYPOGONADISM
     Dosage: 15 MG, QD
     Route: 048
     Dates: start: 201709
  4. DEFERASIROX. [Concomitant]
     Active Substance: DEFERASIROX
     Indication: HAEMOCHROMATOSIS
     Dosage: 2160 MG, QD
     Route: 048
     Dates: start: 201709
  5. FEMOSTON [Concomitant]
     Active Substance: DYDROGESTERONE\ESTRADIOL
     Indication: SECONDARY HYPOGONADISM
     Dosage: 1 DF, QD
     Route: 048
     Dates: start: 201709
  6. ISOCILLIN [Concomitant]
     Indication: SPLENECTOMY
     Dosage: 120000 MG, QD
     Route: 048
     Dates: start: 201709
  7. DEFERIPRON [Concomitant]
     Indication: HAEMOCHROMATOSIS
     Dosage: 5500 MG, QD (2000-1000-500-2000 MG )
     Route: 048
     Dates: start: 201709
  8. COLCHICIN [Concomitant]
     Active Substance: COLCHICINE
     Indication: BRUCELLOSIS
     Dosage: 3 MG, QD
     Route: 048
     Dates: start: 201710

REACTIONS (5)
  - Renal failure [Recovered/Resolved]
  - Disseminated intravascular coagulation [Recovered/Resolved]
  - Meningitis pneumococcal [Recovered/Resolved]
  - Pneumococcal sepsis [Recovered/Resolved]
  - Septic shock [Recovered/Resolved]

NARRATIVE: CASE EVENT DATE: 20190514
